FAERS Safety Report 8799981 (Version 1)
Quarter: 2012Q4

REPORT INFORMATION
  Report Type: 
  Country: GB (occurrence: GB)
  Receive Date: 20120921
  Receipt Date: 20120921
  Transmission Date: 20130627
  Serious: Yes (Other)
  Sender: FDA-Public Use
  Company Number: GB-RANBAXY-2012R1-59944

PATIENT
  Age: 53 Year
  Sex: Male
  Weight: 108 kg

DRUGS (4)
  1. GLIMEPIRIDE [Suspect]
     Indication: DIABETES MELLITUS
     Dosage: UNK
     Route: 048
     Dates: start: 20111205, end: 20120817
  2. METFORMIN [Concomitant]
     Indication: DIABETES MELLITUS
     Dosage: 1 g, bid
     Route: 048
     Dates: start: 200706
  3. RAMIPRIL [Concomitant]
     Indication: DIABETES MELLITUS
     Dosage: UNK
     Route: 048
     Dates: start: 201107
  4. SIMVASTATIN [Concomitant]
     Indication: DIABETES MELLITUS
     Dosage: UNK
     Route: 048
     Dates: start: 200703

REACTIONS (2)
  - Gingival recession [Not Recovered/Not Resolved]
  - Tooth loss [Not Recovered/Not Resolved]
